FAERS Safety Report 23035881 (Version 1)
Quarter: 2023Q4

REPORT INFORMATION
  Report Type: Spontaneous
  Country: US (occurrence: US)
  Receive Date: 20231006
  Receipt Date: 20231006
  Transmission Date: 20240110
  Serious: No
  Sender: FDA-Public Use
  Company Number: US-ChurchDwight-2023-CDW-01540

PATIENT
  Age: 52 Year
  Sex: Female

DRUGS (1)
  1. ZICAM NOS [Suspect]
     Active Substance: ECHINACEA ANGUSTIFOLIA\HOMEOPATHICS\ZINC ACETATE\ZINC GLUCONATE OR HOMEOPATHICS\ZINC ACETATE\ZINC GL
     Indication: Product used for unknown indication
     Route: 045
     Dates: start: 202308

REACTIONS (5)
  - Anosmia [Not Recovered/Not Resolved]
  - Headache [Unknown]
  - Nasal discomfort [Unknown]
  - Expired product administered [Unknown]
  - Recalled product administered [Unknown]

NARRATIVE: CASE EVENT DATE: 20230815
